FAERS Safety Report 5020675-6 (Version None)
Quarter: 2006Q2

REPORT INFORMATION
  Report Type: 
  Country: None (occurrence: None)
  Receive Date: 20060602
  Receipt Date: 20060512
  Transmission Date: 20061013
  Serious: Yes (Other)
  Sender: FDA-Public Use
  Company Number: US200605003565

PATIENT

DRUGS (3)
  1. PROZAC [Suspect]
     Dosage: TRANSPLACENTAL
     Route: 064
     Dates: start: 20060201
  2. ALBUTEROL [Concomitant]
  3. INVESTIGATIONAL DRUG [Concomitant]

REACTIONS (4)
  - ABORTION INDUCED [None]
  - DRUG EXPOSURE DURING PREGNANCY [None]
  - FOETAL GROWTH RETARDATION [None]
  - UNWANTED PREGNANCY [None]
